FAERS Safety Report 16478341 (Version 1)
Quarter: 2019Q2

REPORT INFORMATION
  Report Type: Spontaneous
  Country: US (occurrence: US)
  Receive Date: 20190626
  Receipt Date: 20190626
  Transmission Date: 20190711
  Serious: No
  Sender: FDA-Public Use
  Company Number: US-DRREDDYS-USA/USA/19/0111157

PATIENT
  Sex: Female

DRUGS (3)
  1. CALCIUM CITRATE/VITAMIN D 630/500 MG [Concomitant]
     Indication: PRODUCT USED FOR UNKNOWN INDICATION
     Dosage: 630/500 MG
  2. CENTRUM [Concomitant]
     Active Substance: VITAMINS
     Indication: PRODUCT USED FOR UNKNOWN INDICATION
  3. IBANDRONATE SODIUM TABLETS 150 MG [Suspect]
     Active Substance: IBANDRONATE SODIUM
     Indication: BONE DISORDER
     Route: 048

REACTIONS (3)
  - Product quality issue [Unknown]
  - Abdominal discomfort [Recovered/Resolved]
  - Drug ineffective [Unknown]
